FAERS Safety Report 16394114 (Version 1)
Quarter: 2019Q3

REPORT INFORMATION
  Report Type: Spontaneous
  Country: US (occurrence: US)
  Receive Date: 20190603
  Receipt Date: 20190603
  Transmission Date: 20191004
  Serious: Yes (Other)
  Sender: FDA-Public Use
  Company Number: None

PATIENT
  Age: 68 Year
  Sex: Female
  Weight: 59 kg

DRUGS (6)
  1. CLONAZEPAM 1MG BID [Concomitant]
  2. LAMOTRIGINE 300MG BID [Concomitant]
  3. OMEPRAZOLE 20MG DAILY [Concomitant]
  4. MONTELUKAST 10MG DAILY [Concomitant]
  5. LEVITIRACETAM 2500MG BID [Concomitant]
  6. AMIODARONE [Suspect]
     Active Substance: AMIODARONE
     Indication: ARRHYTHMIA
     Route: 048
     Dates: start: 20180330, end: 20190417

REACTIONS (2)
  - Blood alkaline phosphatase increased [None]
  - Aspartate aminotransferase increased [None]

NARRATIVE: CASE EVENT DATE: 20190307
